FAERS Safety Report 7809121-4 (Version None)
Quarter: 2011Q4

REPORT INFORMATION
  Report Type: 
  Country: None (occurrence: None)
  Receive Date: 20111006
  Receipt Date: 20110927
  Transmission Date: 20120403
  Serious: Yes (Death)
  Sender: FDA-Public Use
  Company Number: MPS1-1000575

PATIENT
  Age: 13 Year
  Sex: Male

DRUGS (1)
  1. ALDURAZYME [Suspect]
     Indication: MUCOPOLYSACCHARIDOSIS I
     Dosage: UNK, INTRAVENOUS
     Route: 042

REACTIONS (2)
  - CARDIAC ARREST [None]
  - INFUSION RELATED REACTION [None]
